FAERS Safety Report 17055560 (Version 1)
Quarter: 2019Q4

REPORT INFORMATION
  Report Type: Report from Study
  Country: None (occurrence: CA)
  Receive Date: 20191120
  Receipt Date: 20191120
  Transmission Date: 20200122
  Serious: Yes (Other)
  Sender: FDA-Public Use
  Company Number: CA-ABBVIE-19P-028-3005975-00

PATIENT
  Sex: Female

DRUGS (1)
  1. SKYRIZI [Suspect]
     Active Substance: RISANKIZUMAB-RZAA
     Indication: PSORIASIS
     Dosage: LAST INJECTION ON: 16 OCT 2019
     Route: 058
     Dates: start: 20190820

REACTIONS (5)
  - Weight decreased [Unknown]
  - Pruritus [Not Recovered/Not Resolved]
  - Surgery [Unknown]
  - Skin exfoliation [Not Recovered/Not Resolved]
  - Incision site pruritus [Unknown]

NARRATIVE: CASE EVENT DATE: 2019
